FAERS Safety Report 23110221 (Version 1)
Quarter: 2023Q4

REPORT INFORMATION
  Report Type: Spontaneous
  Country: US (occurrence: None)
  Receive Date: 20231024
  Receipt Date: 20231024
  Transmission Date: 20240110
  Serious: Yes (Hospitalization)
  Sender: FDA-Public Use
  Company Number: None

PATIENT
  Age: 74 Year
  Sex: Male
  Weight: 90 kg

DRUGS (1)
  1. NIRMATRELVIR\RITONAVIR [Suspect]
     Active Substance: NIRMATRELVIR\RITONAVIR
     Dosage: OTHER QUANTITY : 150MG/100MG;?FREQUENCY : TWICE A DAY;?
     Route: 048
     Dates: start: 20230426, end: 20230430

REACTIONS (2)
  - Chills [None]
  - Dysgeusia [None]

NARRATIVE: CASE EVENT DATE: 20230430
